FAERS Safety Report 16820897 (Version 1)
Quarter: 2019Q3

REPORT INFORMATION
  Report Type: Spontaneous
  Country: JP (occurrence: JP)
  Receive Date: 20190918
  Receipt Date: 20190918
  Transmission Date: 20191005
  Serious: Yes (Hospitalization)
  Sender: FDA-Public Use
  Company Number: JP-TEVA-2019-JP-1105492

PATIENT
  Age: 88 Year
  Sex: Male

DRUGS (5)
  1. ALOSENN [Concomitant]
  2. TRERIEF [Concomitant]
     Active Substance: ZONISAMIDE
  3. MAGMITT [Concomitant]
     Active Substance: MAGNESIUM OXIDE
  4. AZILECT [Suspect]
     Active Substance: RASAGILINE MESYLATE
     Indication: PARKINSON^S DISEASE
     Dosage: 1 MILLIGRAM DAILY;
     Route: 048
  5. STALEVO [Concomitant]
     Active Substance: CARBIDOPA\ENTACAPONE\LEVODOPA

REACTIONS (1)
  - Pneumonia [Recovering/Resolving]
